FAERS Safety Report 20255396 (Version 1)
Quarter: 2021Q4

REPORT INFORMATION
  Report Type: Report from Study
  Country: CH (occurrence: CH)
  Receive Date: 20211230
  Receipt Date: 20211230
  Transmission Date: 20220303
  Serious: Yes (Hospitalization)
  Sender: FDA-Public Use
  Company Number: CH-002147023-NVSC2019CH084166

PATIENT
  Age: 23 Year
  Sex: Female

DRUGS (1)
  1. ERENUMAB [Suspect]
     Active Substance: ERENUMAB
     Indication: Migraine
     Dosage: 70 MILLIGRAM
     Route: 058
     Dates: start: 20190730, end: 20191231

REACTIONS (5)
  - Urinary tract infection [Recovered/Resolved]
  - Normal newborn [Unknown]
  - Infectious mononucleosis [Recovered/Resolved]
  - Maternal exposure before pregnancy [Unknown]
  - Delivery [Unknown]

NARRATIVE: CASE EVENT DATE: 20190828
